FAERS Safety Report 6951294-X (Version None)
Quarter: 2010Q3

REPORT INFORMATION
  Report Type: 
  Country: None (occurrence: None)
  Receive Date: 20100828
  Receipt Date: 20100316
  Transmission Date: 20110219
  Serious: No
  Sender: FDA-Public Use
  Company Number: US-ABBOTT-10P-163-0633968-00

PATIENT
  Sex: Male
  Weight: 99.88 kg

DRUGS (7)
  1. NIASPAN [Suspect]
     Indication: HIGH DENSITY LIPOPROTEIN DECREASED
     Dates: start: 20100309
  2. CRESTOR [Concomitant]
     Indication: BLOOD CHOLESTEROL
     Dates: start: 20100309
  3. AZOR [Concomitant]
     Indication: BLOOD PRESSURE
     Dosage: 10/40MG
     Dates: start: 20090101
  4. LEVOTHYROXINE [Concomitant]
     Indication: THYROID DISORDER
     Dates: start: 20090101
  5. HYDROCHLOROTHIAZIDE [Concomitant]
     Indication: BLOOD PRESSURE
     Dates: start: 20090101
  6. METOPROLOL [Concomitant]
     Indication: BLOOD PRESSURE
     Dates: start: 20100309
  7. ASPIRIN [Concomitant]
     Indication: PRODUCT USED FOR UNKNOWN INDICATION

REACTIONS (2)
  - FEELING HOT [None]
  - FLUSHING [None]
